FAERS Safety Report 20448216 (Version 1)
Quarter: 2022Q1

REPORT INFORMATION
  Report Type: Spontaneous
  Country: US (occurrence: US)
  Receive Date: 20220209
  Receipt Date: 20220209
  Transmission Date: 20220423
  Serious: Yes (Other)
  Sender: FDA-Public Use
  Company Number: US-SA-SAC20220203001270

PATIENT
  Age: 59 Year
  Sex: Female

DRUGS (1)
  1. ZANTAC [Suspect]
     Active Substance: RANITIDINE HYDROCHLORIDE
     Indication: Dyspepsia
     Dosage: UNK, QW
     Dates: start: 199601, end: 199701

REACTIONS (6)
  - Breast cancer stage I [Unknown]
  - Colorectal cancer stage II [Unknown]
  - Hypothyroidism [Unknown]
  - Oesophageal dysplasia [Unknown]
  - Thyroid mass [Unknown]
  - Pulmonary mass [Unknown]

NARRATIVE: CASE EVENT DATE: 20080101
